FAERS Safety Report 21694714 (Version 1)
Quarter: 2022Q4

REPORT INFORMATION
  Report Type: Spontaneous
  Country: US (occurrence: None)
  Receive Date: 20221207
  Receipt Date: 20221207
  Transmission Date: 20230113
  Serious: Yes (Hospitalization)
  Sender: FDA-Public Use
  Company Number: None

PATIENT
  Age: 79 Year
  Sex: 0

DRUGS (1)
  1. BUPIVACAINE [Suspect]
     Active Substance: BUPIVACAINE
     Route: 030

REACTIONS (3)
  - Hypoaesthesia [None]
  - Hyporesponsive to stimuli [None]
  - Movement disorder [None]

NARRATIVE: CASE EVENT DATE: 20221019
